FAERS Safety Report 21992086 (Version 1)
Quarter: 2023Q1

REPORT INFORMATION
  Report Type: Report from Study
  Country: CO (occurrence: CO)
  Receive Date: 20230214
  Receipt Date: 20230214
  Transmission Date: 20230417
  Serious: Yes (Hospitalization)
  Sender: FDA-Public Use
  Company Number: CO-ABBVIE-4305905

PATIENT
  Age: 83 Year
  Sex: Male
  Weight: 70 kg

DRUGS (11)
  1. HUMIRA [Suspect]
     Active Substance: ADALIMUMAB
     Indication: Product used for unknown indication
     Route: 058
     Dates: start: 20110811
  2. HUMIRA [Suspect]
     Active Substance: ADALIMUMAB
  3. VITAMIN D [Concomitant]
     Active Substance: VITAMIN D NOS
     Indication: Product used for unknown indication
     Dosage: 1 CAPSULE, FREQUENCY TEXT: MONDAYS, WEDNESDAYS AND FRIDAYS
     Route: 048
  4. Betaloc 25 MG [Concomitant]
     Indication: Product used for unknown indication
     Route: 048
  5. Pradaxa 100 MG [Concomitant]
     Indication: Product used for unknown indication
     Dosage: 1 TABLET
     Route: 048
  6. MIRABEGRON [Concomitant]
     Active Substance: MIRABEGRON
     Indication: Product used for unknown indication
     Dosage: 1 TABLET
     Route: 048
  7. Salagen 5 MG [Concomitant]
     Indication: Product used for unknown indication
     Dosage: 1 TABLET
     Route: 048
  8. VESICARE [Concomitant]
     Active Substance: SOLIFENACIN SUCCINATE
     Indication: Product used for unknown indication
     Dosage: 1 TABLET
     Route: 048
  9. PREDNISOLONE [Concomitant]
     Active Substance: PREDNISOLONE
     Indication: Product used for unknown indication
     Dosage: 1 TABLET
     Route: 048
  10. METAMUCIL [Concomitant]
     Active Substance: PLANTAGO SEED
     Indication: Product used for unknown indication
     Dosage: 1 SACHET
     Route: 048
  11. ESOMEPRAZOLE [Concomitant]
     Active Substance: ESOMEPRAZOLE
     Indication: Product used for unknown indication
     Dosage: 1 TABLET
     Route: 048

REACTIONS (3)
  - Respiratory rate decreased [Recovered/Resolved]
  - Productive cough [Recovered/Resolved]
  - Pneumonia [Recovered/Resolved]

NARRATIVE: CASE EVENT DATE: 20230104
